FAERS Safety Report 19738577 (Version 3)
Quarter: 2021Q3

REPORT INFORMATION
  Report Type: Spontaneous
  Country: US (occurrence: US)
  Receive Date: 20210823
  Receipt Date: 20210922
  Transmission Date: 20211014
  Serious: Yes (Other)
  Sender: FDA-Public Use
  Company Number: US-DECIPHERA PHARMACEUTICALS LLC-2021US000700

PATIENT
  Age: 52 Year
  Sex: Male

DRUGS (14)
  1. QINLOCK [Suspect]
     Active Substance: RIPRETINIB
     Dosage: 150 MILLIGRAM, BID
     Route: 048
     Dates: start: 20210821
  2. FLUOROURACIL. [Concomitant]
     Active Substance: FLUOROURACIL
  3. QINLOCK [Suspect]
     Active Substance: RIPRETINIB
     Dosage: 150 MILLIGRAM, BID
     Route: 048
     Dates: start: 20210817
  4. GENTAMYCIN [GENTAMICIN] [Concomitant]
     Active Substance: GENTAMICIN
     Dosage: UNK
  5. TAMSULOSIN [Concomitant]
     Active Substance: TAMSULOSIN
  6. QINLOCK [Suspect]
     Active Substance: RIPRETINIB
     Dosage: 150 MILLIGRAM, BID
     Route: 048
     Dates: start: 20210812
  7. VITAMIN B12 [Concomitant]
     Active Substance: CYANOCOBALAMIN
  8. DOXYCYCLINE. [Concomitant]
     Active Substance: DOXYCYCLINE
  9. CITALOPRAM [Concomitant]
     Active Substance: CITALOPRAM HYDROBROMIDE
  10. VITAMIN E [Concomitant]
     Active Substance: .ALPHA.-TOCOPHEROL
  11. FISH OIL [Concomitant]
     Active Substance: FISH OIL
  12. AMLODIPINE [Concomitant]
     Active Substance: AMLODIPINE BESYLATE
  13. QINLOCK [Suspect]
     Active Substance: RIPRETINIB
     Indication: GASTROINTESTINAL STROMAL TUMOUR
     Dosage: 150 MILLIGRAM, QD
     Route: 048
  14. VALACYCLOVIR [Concomitant]
     Active Substance: VALACYCLOVIR HYDROCHLORIDE

REACTIONS (9)
  - Neoplasm progression [Not Recovered/Not Resolved]
  - Constipation [Unknown]
  - Off label use [Unknown]
  - Fatigue [Unknown]
  - Sarcoma [Unknown]
  - Pain in extremity [Unknown]
  - Diarrhoea [Unknown]
  - Extra dose administered [Unknown]
  - Nausea [Unknown]

NARRATIVE: CASE EVENT DATE: 20210812
